FAERS Safety Report 8563609-X (Version None)
Quarter: 2012Q3

REPORT INFORMATION
  Report Type: 
  Country: None (occurrence: None)
  Receive Date: 20120803
  Receipt Date: 20120726
  Transmission Date: 20120928
  Serious: Yes (Hospitalization)
  Sender: FDA-Public Use
  Company Number: US-BIOGENIDEC-2012BI027664

PATIENT
  Age: 74 Year
  Sex: Female

DRUGS (1)
  1. AVONEX [Suspect]
     Indication: MULTIPLE SCLEROSIS
     Route: 030
     Dates: start: 19980101

REACTIONS (12)
  - FATIGUE [None]
  - KNEE ARTHROPLASTY [None]
  - INJECTION SITE ATROPHY [None]
  - GENERAL SYMPTOM [None]
  - DEAFNESS [None]
  - INJECTION SITE PAIN [None]
  - PAIN IN EXTREMITY [None]
  - DIZZINESS [None]
  - ANGER [None]
  - HEARING IMPAIRED [None]
  - BALANCE DISORDER [None]
  - HYPOAESTHESIA [None]
